FAERS Safety Report 11898074 (Version 1)
Quarter: 2016Q1

REPORT INFORMATION
  Report Type: Spontaneous
  Country: US (occurrence: None)
  Receive Date: 20160107
  Receipt Date: 20160107
  Transmission Date: 20160526
  Serious: Yes (Disabling)
  Sender: FDA-Public Use
  Company Number: None

PATIENT
  Age: 54 Year
  Sex: Male
  Weight: 58.97 kg

DRUGS (1)
  1. DEXILANT [Suspect]
     Active Substance: DEXLANSOPRAZOLE
     Indication: GASTRIC DISORDER
     Dosage: 30 1 DAILY MOUTH
     Route: 048
     Dates: start: 20150324, end: 20150402

REACTIONS (4)
  - Abdominal pain upper [None]
  - Lung disorder [None]
  - Dyspnoea [None]
  - Liver disorder [None]

NARRATIVE: CASE EVENT DATE: 20150402
